FAERS Safety Report 17280899 (Version 1)
Quarter: 2020Q1

REPORT INFORMATION
  Report Type: Spontaneous
  Country: US (occurrence: US)
  Receive Date: 20200117
  Receipt Date: 20200117
  Transmission Date: 20200409
  Serious: Yes (Death, Hospitalization, Other)
  Sender: FDA-Public Use
  Company Number: US-CIPLA LTD.-2020US00236

PATIENT

DRUGS (1)
  1. BUPROPION. [Suspect]
     Active Substance: BUPROPION
     Dosage: UNK
     Route: 048

REACTIONS (12)
  - Cardiogenic shock [Fatal]
  - Suicide attempt [Unknown]
  - Acute kidney injury [Unknown]
  - Congestive cardiomyopathy [Fatal]
  - Hypotension [Unknown]
  - Intentional overdose [Unknown]
  - Toxicity to various agents [Unknown]
  - Electrocardiogram QRS complex prolonged [Unknown]
  - Cardiotoxicity [Fatal]
  - Generalised tonic-clonic seizure [Unknown]
  - Metabolic acidosis [Unknown]
  - Electrocardiogram QT prolonged [Unknown]
